FAERS Safety Report 9921173 (Version 1)
Quarter: 2014Q1

REPORT INFORMATION
  Report Type: Spontaneous
  Country: US (occurrence: None)
  Receive Date: 20140221
  Receipt Date: 20140221
  Transmission Date: 20141002
  Serious: Yes (Death, Other)
  Sender: FDA-Public Use
  Company Number: None

PATIENT
  Sex: Female
  Weight: 64.41 kg

DRUGS (1)
  1. TORISEL [Suspect]
     Indication: RENAL CANCER
     Dosage: ONE ?A WEEK ?IV
     Route: 042
     Dates: start: 2009

REACTIONS (2)
  - Drug ineffective [None]
  - Cardiac disorder [None]
